FAERS Safety Report 23671269 (Version 2)
Quarter: 2024Q2

REPORT INFORMATION
  Report Type: Spontaneous
  Country: US (occurrence: US)
  Receive Date: 20240326
  Receipt Date: 20240404
  Transmission Date: 20240716
  Serious: Yes (Other)
  Sender: FDA-Public Use
  Company Number: US-ALKEM LABORATORIES LIMITED-US-ALKEM-2024-05282

PATIENT
  Age: 67 Year
  Sex: Male

DRUGS (6)
  1. DIMETHYL FUMARATE [Suspect]
     Active Substance: DIMETHYL FUMARATE
     Indication: Multiple sclerosis
     Dosage: UNK
     Route: 065
  2. DIMETHYL FUMARATE [Suspect]
     Active Substance: DIMETHYL FUMARATE
     Indication: Progressive multifocal leukoencephalopathy
  3. CLADRIBINE [Suspect]
     Active Substance: CLADRIBINE
     Indication: Product used for unknown indication
     Dosage: 0.7 MILLIGRAM/KILOGRAM/COURSE (5 DAY COURSE)
     Route: 042
  4. CLADRIBINE [Suspect]
     Active Substance: CLADRIBINE
     Dosage: UNK (45 TO 55MG PER 5-DAY COURSE)
     Route: 042
  5. CLADRIBINE [Suspect]
     Active Substance: CLADRIBINE
     Dosage: 0.7 MILLIGRAM/KILOGRAM (TWO IVCDA BOOSTER COURSES (0.7MG/KG/COURSE))
     Route: 042
  6. NATALIZUMAB [Concomitant]
     Active Substance: NATALIZUMAB
     Indication: Product used for unknown indication
     Dosage: UNK
     Route: 065

REACTIONS (1)
  - Myelodysplastic syndrome [Unknown]
